FAERS Safety Report 6880722-3 (Version None)
Quarter: 2010Q3

REPORT INFORMATION
  Report Type: 
  Country: None (occurrence: None)
  Receive Date: 20100728
  Receipt Date: 20100714
  Transmission Date: 20110219
  Serious: Yes (Disabling, Other)
  Sender: FDA-Public Use
  Company Number: US-BAYER-201027986NA

PATIENT
  Age: 43 Year
  Sex: Female

DRUGS (1)
  1. MIRENA [Suspect]
     Indication: PRODUCT USED FOR UNKNOWN INDICATION
     Dosage: FREQUENCY: CONTINUOUS
     Route: 015
     Dates: start: 20080101

REACTIONS (5)
  - BLINDNESS UNILATERAL [None]
  - HEADACHE [None]
  - HYPERTENSION [None]
  - MIGRAINE [None]
  - RETINAL VASCULAR THROMBOSIS [None]
